FAERS Safety Report 12439704 (Version 2)
Quarter: 2016Q2

REPORT INFORMATION
  Report Type: Spontaneous
  Country: ES (occurrence: ES)
  Receive Date: 20160606
  Receipt Date: 20160620
  Transmission Date: 20160815
  Serious: Yes (Other)
  Sender: FDA-Public Use
  Company Number: ES-APOTEX-2016AP008870

PATIENT
  Age: 51 Year
  Sex: Female

DRUGS (2)
  1. ACIDO IBANDRONICO APOTEX COMPRIMIDOS RECUBIERTOS CON PELICULA EFG [Suspect]
     Active Substance: IBANDRONIC ACID
     Indication: SPINAL FRACTURE
     Dosage: UNK
     Route: 065
  2. PREDNISONE. [Concomitant]
     Active Substance: PREDNISONE
     Indication: PRODUCT USED FOR UNKNOWN INDICATION
     Dosage: BETWEEN 1 AND 2.5 MG/KG/DAY
     Route: 065

REACTIONS (1)
  - Iridocyclitis [Recovering/Resolving]
